FAERS Safety Report 9300612 (Version 1)
Quarter: 2013Q2

REPORT INFORMATION
  Report Type: Spontaneous
  Country: US (occurrence: None)
  Receive Date: 20130520
  Receipt Date: 20130520
  Transmission Date: 20140414
  Serious: Yes (Death)
  Sender: FDA-Public Use
  Company Number: None

PATIENT
  Age: 58 Year
  Sex: Female

DRUGS (2)
  1. MYCOPHENOLATE [Suspect]
     Indication: RENAL TRANSPLANT
     Dosage: 2 TABS BID PO
     Dates: start: 20110817
  2. NEORAL [Suspect]
     Dosage: 3 CAPS BID PO
     Dates: start: 20130211

REACTIONS (2)
  - Cardiac infection [None]
  - Respiratory tract infection [None]
